FAERS Safety Report 5621738-4 (Version None)
Quarter: 2008Q1

REPORT INFORMATION
  Report Type: 
  Country: None (occurrence: None)
  Receive Date: 20080211
  Receipt Date: 20080131
  Transmission Date: 20080703
  Serious: Yes (Life-Threatening)
  Sender: FDA-Public Use
  Company Number: PHHY2008JP01326

PATIENT
  Age: 78 Year
  Sex: Male

DRUGS (4)
  1. DIOVAN [Suspect]
     Indication: HYPERTENSION
     Dosage: 80 MG/DAY
     Route: 048
     Dates: start: 20071215, end: 20080131
  2. NORVASC [Suspect]
     Dosage: 5 MG/DAY
     Route: 048
     Dates: start: 20071214, end: 20080131
  3. PAXIL [Suspect]
     Dosage: 20 G/DAY
     Route: 048
     Dates: end: 20080131
  4. TAKEPRON [Suspect]
     Dosage: 30 MG/DAY
     Route: 048
     Dates: end: 20080101

REACTIONS (3)
  - PLATELET COUNT DECREASED [None]
  - SEPSIS [None]
  - WHITE BLOOD CELL COUNT DECREASED [None]
